FAERS Safety Report 24246238 (Version 3)
Quarter: 2024Q4

REPORT INFORMATION
  Report Type: Report from Study
  Country: GR (occurrence: GR)
  Receive Date: 20240825
  Receipt Date: 20241205
  Transmission Date: 20250114
  Serious: Yes (Death, Hospitalization, Other)
  Sender: ROCHE
  Company Number: GR-ROCHE-10000060391

PATIENT

DRUGS (5)
  1. RITUXIMAB [Suspect]
     Active Substance: RITUXIMAB
     Indication: Anti-neutrophil cytoplasmic antibody positive vasculitis
     Route: 065
  2. MYCOPHENOLATE MOFETIL [Suspect]
     Active Substance: MYCOPHENOLATE MOFETIL
     Indication: Anti-neutrophil cytoplasmic antibody positive vasculitis
     Route: 065
  3. AZATHIOPRINE [Suspect]
     Active Substance: AZATHIOPRINE
     Indication: Anti-neutrophil cytoplasmic antibody positive vasculitis
     Route: 065
  4. METHOTREXATE [Suspect]
     Active Substance: METHOTREXATE
     Indication: Anti-neutrophil cytoplasmic antibody positive vasculitis
     Route: 065
  5. CYCLOPHOSPHAMIDE [Suspect]
     Active Substance: CYCLOPHOSPHAMIDE
     Indication: Anti-neutrophil cytoplasmic antibody positive vasculitis
     Route: 065

REACTIONS (15)
  - COVID-19 [Fatal]
  - Herpes zoster [Unknown]
  - Cardiac failure [Unknown]
  - Coronary revascularisation [Fatal]
  - Myocardial infarction [Unknown]
  - Cerebrovascular accident [Fatal]
  - Hypogammaglobulinaemia [Unknown]
  - Infection [Fatal]
  - Gastrointestinal carcinoma [Fatal]
  - Respiratory tract infection [Unknown]
  - Urinary tract infection [Unknown]
  - Haematological infection [Unknown]
  - Arterial thrombosis [Unknown]
  - Venous thrombosis [Unknown]
  - Arterial revascularisation [Unknown]
